FAERS Safety Report 25751673 (Version 1)
Quarter: 2025Q3

REPORT INFORMATION
  Report Type: Report from Study
  Country: PH (occurrence: PH)
  Receive Date: 20250902
  Receipt Date: 20250902
  Transmission Date: 20251021
  Serious: Yes (Death)
  Sender: OTSUKA
  Company Number: PH-MMM-Otsuka-16BXGEL3

PATIENT

DRUGS (2)
  1. TOLVAPTAN [Suspect]
     Active Substance: TOLVAPTAN
     Indication: Blood potassium decreased
     Dosage: 0.5 DF, DAILY (15 MG 1/2 TABLET A DAY)
     Route: 048
     Dates: start: 202308
  2. TOLVAPTAN [Suspect]
     Active Substance: TOLVAPTAN
     Indication: Amnesia

REACTIONS (2)
  - Oxygen saturation decreased [Fatal]
  - Product use in unapproved indication [Unknown]

NARRATIVE: CASE EVENT DATE: 20230801
